FAERS Safety Report 8452247-5 (Version None)
Quarter: 2012Q2

REPORT INFORMATION
  Report Type: 
  Country: None (occurrence: None)
  Receive Date: 20120620
  Receipt Date: 20120618
  Transmission Date: 20120825
  Serious: No
  Sender: FDA-Public Use
  Company Number: US-BAYER-2012-060579

PATIENT
  Age: 72 Year
  Sex: Female
  Weight: 58 kg

DRUGS (4)
  1. COQ10 [Concomitant]
  2. CRESTOR [Concomitant]
     Dosage: 5 MG
  3. ALEVE (CAPLET) [Suspect]
     Indication: ARTHRITIS
     Dosage: 2 TABLETS ONCE DAILY - 130 COUNT
     Route: 048
     Dates: start: 20120607, end: 20120614
  4. CALCIUM [Concomitant]

REACTIONS (3)
  - PAIN [None]
  - PRURITUS [None]
  - RASH MACULAR [None]
